FAERS Safety Report 4728640-0 (Version None)
Quarter: 2005Q3

REPORT INFORMATION
  Report Type: 
  Country: None (occurrence: None)
  Receive Date: 20050727
  Receipt Date: 20050718
  Transmission Date: 20060218
  Serious: Yes (Hospitalization)
  Sender: FDA-Public Use
  Company Number: OXER20050022

PATIENT
  Age: 48 Year
  Sex: Male
  Weight: 68.0396 kg

DRUGS (4)
  1. OXYCODONE ER, 20 MG, ENDO [Suspect]
     Indication: PAIN
     Dosage: 20MG, TID; PO
     Route: 048
     Dates: start: 20050627, end: 20050713
  2. OXYIR [Concomitant]
  3. NEXIUM [Concomitant]
  4. AMITRIPTYLINE [Concomitant]

REACTIONS (9)
  - DIARRHOEA [None]
  - DRUG INEFFECTIVE [None]
  - DYSARTHRIA [None]
  - EYE OEDEMA [None]
  - FATIGUE [None]
  - FLATULENCE [None]
  - HEADACHE [None]
  - LETHARGY [None]
  - PANCREATITIS [None]
